FAERS Safety Report 8825336 (Version 1)
Quarter: 2012Q4

REPORT INFORMATION
  Report Type: 
  Country: US (occurrence: US)
  Receive Date: 20121004
  Receipt Date: 20121004
  Transmission Date: 20130627
  Serious: No
  Sender: FDA-Public Use
  Company Number: US-009507513-1210USA000767

PATIENT
  Sex: Female

DRUGS (2)
  1. HYZAAR [Suspect]
     Dosage: UNK
  2. HYZAAR [Suspect]
     Dosage: 100/25, qd
     Route: 048

REACTIONS (2)
  - Cough [Unknown]
  - Drug dose omission [Unknown]
